FAERS Safety Report 23703615 (Version 1)
Quarter: 2024Q2

REPORT INFORMATION
  Report Type: Spontaneous
  Country: FR (occurrence: FR)
  Receive Date: 20240403
  Receipt Date: 20240403
  Transmission Date: 20240716
  Serious: Yes (Death, Hospitalization, Other)
  Sender: FDA-Public Use
  Company Number: FR-AMGEN-FRASP2024064788

PATIENT

DRUGS (5)
  1. ADALIMUMAB [Suspect]
     Active Substance: ADALIMUMAB\ISOPROPYL ALCOHOL
     Indication: Psoriatic arthropathy
     Dosage: UNK
     Route: 065
  2. PREDNISONE [Suspect]
     Active Substance: PREDNISONE
     Indication: Product used for unknown indication
     Route: 065
  3. METHOTREXATE [Concomitant]
     Active Substance: METHOTREXATE
  4. LEFLUNOMIDE [Concomitant]
     Active Substance: LEFLUNOMIDE
  5. SULFASALAZINE [Concomitant]
     Active Substance: SULFASALAZINE

REACTIONS (17)
  - Death [Fatal]
  - Ear, nose and throat infection [Unknown]
  - Central nervous system infection [Unknown]
  - Legionella infection [Unknown]
  - Oesophageal candidiasis [Unknown]
  - Infection [Unknown]
  - Aspergillus infection [Unknown]
  - Herpes zoster meningitis [Unknown]
  - Pneumocystis jirovecii pneumonia [Unknown]
  - Genitourinary tract infection [Unknown]
  - Cryptosporidiosis infection [Unknown]
  - Toxoplasmosis [Unknown]
  - Pneumonia [Unknown]
  - Tuberculosis [Unknown]
  - Gastrointestinal infection [Unknown]
  - Skin infection [Unknown]
  - Arthritis infective [Unknown]
